FAERS Safety Report 4436652-X (Version None)
Quarter: 2004Q3

REPORT INFORMATION
  Report Type: 
  Country: None (occurrence: None)
  Receive Date: 20040830
  Receipt Date: 20040727
  Transmission Date: 20050211
  Serious: No
  Sender: FDA-Public Use
  Company Number: US-BRISTOL-MYERS SQUIBB COMPANY-12652780

PATIENT
  Age: 56 Year
  Sex: Female
  Weight: 66 kg

DRUGS (4)
  1. ABILIFY [Suspect]
     Indication: BIPOLAR DISORDER
     Dosage: DECREASED TO 15 MG/DAY IN APR-04; DECREASED TO 10 MG/DAY ON 01-JUL-04
     Route: 048
     Dates: start: 20030901
  2. ABILIFY [Suspect]
     Indication: SCHIZOPHRENIA
     Dosage: DECREASED TO 15 MG/DAY IN APR-04; DECREASED TO 10 MG/DAY ON 01-JUL-04
     Route: 048
     Dates: start: 20030901
  3. LEXAPRO [Concomitant]
  4. NEURONTIN [Concomitant]

REACTIONS (2)
  - DYSKINESIA [None]
  - WEIGHT DECREASED [None]
